FAERS Safety Report 11427046 (Version 2)
Quarter: 2015Q3

REPORT INFORMATION
  Report Type: Report from Study
  Country: CA (occurrence: CA)
  Receive Date: 20150827
  Receipt Date: 20150930
  Transmission Date: 20151125
  Serious: Yes (Hospitalization)
  Sender: FDA-Public Use
  Company Number: CA-TAKEDA-2015TUS011279

PATIENT
  Age: 70 Year
  Sex: Female

DRUGS (5)
  1. SALOFALK [Concomitant]
     Active Substance: MESALAMINE
     Dosage: 4 MG, UNK
     Route: 054
  2. SALOFALK                           /00000301/ [Concomitant]
     Active Substance: MESALAMINE
     Dosage: 1500 MG, BID
     Route: 054
  3. ASACOL [Concomitant]
     Active Substance: MESALAMINE
     Dosage: 4800 MG, QD
     Dates: start: 2013
  4. VEDOLIZUMAB [Suspect]
     Active Substance: VEDOLIZUMAB
     Indication: COLITIS ULCERATIVE
     Dosage: 300 MG, UNK
     Route: 042
     Dates: start: 20150710
  5. ENTOCORT [Concomitant]
     Active Substance: BUDESONIDE
     Dosage: UNK

REACTIONS (1)
  - Gastrointestinal bacterial infection [Unknown]

NARRATIVE: CASE EVENT DATE: 20150810
